FAERS Safety Report 9228912 (Version 1)
Quarter: 2013Q2

REPORT INFORMATION
  Report Type: Spontaneous
  Country: IL (occurrence: IL)
  Receive Date: 20130412
  Receipt Date: 20130412
  Transmission Date: 20140414
  Serious: Yes (Death, Other)
  Sender: FDA-Public Use
  Company Number: IL-CELGENEUS-082-20785-13040393

PATIENT
  Sex: 0

DRUGS (11)
  1. THALIDOMIDE [Suspect]
     Indication: PLASMA CELL MYELOMA
     Dosage: 100 MILLIGRAM
     Route: 048
  2. DEXAMETHASONE [Concomitant]
     Indication: PLASMA CELL MYELOMA
     Dosage: 40 MILLIGRAM
     Route: 065
  3. VELCADE [Concomitant]
     Indication: PLASMA CELL MYELOMA
     Dosage: .4727 MILLIGRAM/SQ. METER
     Route: 041
  4. CISPLATINUM [Concomitant]
     Indication: PLASMA CELL MYELOMA
     Route: 065
  5. ADRIAMYCIN [Concomitant]
     Indication: PLASMA CELL MYELOMA
     Route: 065
  6. CYCLOPHOSPHAMIDE [Concomitant]
     Indication: PLASMA CELL MYELOMA
     Route: 065
  7. ETOPOSIDE [Concomitant]
     Indication: PLASMA CELL MYELOMA
     Route: 065
  8. MELPHALAN [Concomitant]
     Indication: PLASMA CELL MYELOMA
     Route: 065
  9. MELPHALAN [Concomitant]
     Route: 065
  10. ANTIVIRALS [Concomitant]
     Indication: PROPHYLAXIS
     Route: 065
  11. BIPHOSPHONATES [Concomitant]
     Indication: PROPHYLAXIS
     Route: 065

REACTIONS (15)
  - Stem cell transplant [Fatal]
  - Acute lung injury [Fatal]
  - Renal failure [Fatal]
  - Deep vein thrombosis [Fatal]
  - Sepsis [Fatal]
  - Acute myeloid leukaemia [Unknown]
  - Cardiac failure congestive [Unknown]
  - Clostridium difficile colitis [Unknown]
  - Bacteraemia [Unknown]
  - Mucosal inflammation [Unknown]
  - Pyrexia [Unknown]
  - Neutropenia [Unknown]
  - Infection [Unknown]
  - Pyrexia [Unknown]
  - Pneumocystis jirovecii pneumonia [Unknown]
